FAERS Safety Report 11329907 (Version 1)
Quarter: 2015Q3

REPORT INFORMATION
  Report Type: Spontaneous
  Country: US (occurrence: US)
  Receive Date: 20150803
  Receipt Date: 20150803
  Transmission Date: 20151125
  Serious: No
  Sender: FDA-Public Use
  Company Number: US-PFIZER INC-2015144631

PATIENT
  Age: 48 Year
  Sex: Female

DRUGS (15)
  1. LYRICA [Suspect]
     Active Substance: PREGABALIN
     Dosage: 150 MG, 2X/DAY
     Route: 048
     Dates: start: 20150521
  2. NEURONTIN [Concomitant]
     Active Substance: GABAPENTIN
     Dosage: 600 MG, 3X/DAY ( 300 MG CAPSULE; 2 CAPSULES BY MOUTH EVERY 8 HRS)
     Route: 048
     Dates: start: 20150318, end: 20150616
  3. MIRABEGRON [Concomitant]
     Active Substance: MIRABEGRON
     Dosage: 50 MG, 1X/DAY
     Route: 048
     Dates: start: 20141216
  4. DITROPAN XL [Concomitant]
     Active Substance: OXYBUTYNIN CHLORIDE
     Dosage: 15 MG, UNK
  5. NEURONIN [Concomitant]
     Dosage: 600 MG, 3X/DAY EVERY 8 HOURS
     Route: 048
  6. TUSSIONEX PENNKINETIC [Concomitant]
     Active Substance: CHLORPHENIRAMINE\HYDROCODONE
     Indication: COUGH
     Dosage: 1 DF (230 ML 8-10MG/5 ML SUSPENSION AT ONE TSP), 3X/DAY (1 TSP Q 8 HRS)
     Route: 048
     Dates: start: 20150202
  7. PERCOCET [Concomitant]
     Active Substance: ACETAMINOPHEN\OXYCODONE HYDROCHLORIDE
     Indication: PAIN
     Dosage: [OXYCODONE 10MG- ACETAMINOPHEN 325MG], 4X/DAY EVERY 6 HOURS AS NEEDED
     Route: 048
     Dates: start: 20150226
  8. BENICAR [Concomitant]
     Active Substance: OLMESARTAN MEDOXOMIL
     Indication: BLOOD PRESSURE ABNORMAL
     Dosage: 40 MG, DAILY
     Route: 048
     Dates: start: 20150325
  9. LYRICA [Suspect]
     Active Substance: PREGABALIN
     Indication: PAIN
     Dosage: 75 MG, 2X/DAY
     Route: 048
     Dates: start: 20150320
  10. CYMBALTA [Concomitant]
     Active Substance: DULOXETINE HYDROCHLORIDE
     Dosage: 60 MG, 1X/DAY
     Route: 048
     Dates: start: 20150318, end: 20150616
  11. MOBIC [Concomitant]
     Active Substance: MELOXICAM
     Indication: ARTHRITIS
     Dosage: 15 MG, 1X/DAY (EVERY DAY WITH FOOD)
     Route: 048
     Dates: start: 20150325
  12. LYRICA [Suspect]
     Active Substance: PREGABALIN
     Dosage: 150 MG, 3X/DAY
     Route: 048
     Dates: start: 20150715
  13. NEURONTIN [Concomitant]
     Active Substance: GABAPENTIN
     Dosage: 900 MG, UNK
     Route: 048
     Dates: start: 20150325
  14. PROTONIX [Concomitant]
     Active Substance: PANTOPRAZOLE SODIUM
     Dosage: 20 MG, 1X/DAY
     Dates: start: 20150325
  15. ELAVIL [Concomitant]
     Active Substance: AMITRIPTYLINE HYDROCHLORIDE
     Dosage: 25 MG, 1X/DAY NIGHTLY
     Route: 048
     Dates: start: 20150310

REACTIONS (13)
  - Meralgia paraesthetica [Unknown]
  - Back pain [Unknown]
  - Arthropathy [Unknown]
  - Paraesthesia [Unknown]
  - Neck pain [Unknown]
  - Joint stiffness [Unknown]
  - Joint swelling [Unknown]
  - Pain in extremity [Unknown]
  - Drug ineffective [Unknown]
  - Myalgia [Unknown]
  - Arthralgia [Unknown]
  - Joint range of motion decreased [Unknown]
  - Burning sensation [Unknown]
